FAERS Safety Report 5922154-8 (Version None)
Quarter: 2008Q4

REPORT INFORMATION
  Report Type: 
  Country: None (occurrence: None)
  Receive Date: 20081017
  Receipt Date: 20081007
  Transmission Date: 20090506
  Serious: Yes (Other)
  Sender: FDA-Public Use
  Company Number: US-BAYER-200813851BCC

PATIENT
  Age: 68 Year
  Sex: Female

DRUGS (7)
  1. ASPIRIN [Suspect]
     Indication: DRUG USE FOR UNKNOWN INDICATION
     Dosage: TOTAL DAILY DOSE: 325 MG  UNIT DOSE: 325 MG
     Route: 048
     Dates: start: 20080124
  2. PLAVIX [Suspect]
     Indication: STENT PLACEMENT
     Dosage: TOTAL DAILY DOSE: 75 MG  UNIT DOSE: 75 MG
     Route: 048
     Dates: start: 20080124
  3. METFORMIN HYDROCHLORIDE [Concomitant]
  4. GLYBURIDE [Concomitant]
  5. ATORVASTATIN CALCIUM [Concomitant]
  6. LISINOPRIL [Concomitant]
  7. CARVEDILOL [Concomitant]

REACTIONS (4)
  - BLOOD PRESSURE DECREASED [None]
  - EYE HAEMORRHAGE [None]
  - ORTHOSTATIC HYPOTENSION [None]
  - VITREOUS HAEMORRHAGE [None]
